FAERS Safety Report 21181891 (Version 2)
Quarter: 2022Q3

REPORT INFORMATION
  Report Type: Spontaneous
  Country: JP (occurrence: JP)
  Receive Date: 20220806
  Receipt Date: 20220817
  Transmission Date: 20221026
  Serious: Yes (Other)
  Sender: FDA-Public Use
  Company Number: JP-CHUGAI-2022030174AA

PATIENT
  Age: 5 Decade
  Sex: Male

DRUGS (3)
  1. CELLCEPT [Suspect]
     Active Substance: MYCOPHENOLATE MOFETIL
     Indication: Prophylaxis against transplant rejection
     Dosage: 1000 MILLIGRAM, BID
     Route: 048
  2. CELLCEPT [Suspect]
     Active Substance: MYCOPHENOLATE MOFETIL
     Dosage: 500 MILLIGRAM, BID
     Route: 048
  3. TACROLIMUS [Concomitant]
     Active Substance: TACROLIMUS

REACTIONS (1)
  - Cataract operation [Unknown]
